FAERS Safety Report 7796686-4 (Version None)
Quarter: 2011Q3

REPORT INFORMATION
  Report Type: 
  Country: None (occurrence: None)
  Receive Date: 20110930
  Receipt Date: 20110923
  Transmission Date: 20111222
  Serious: Yes (Other)
  Sender: FDA-Public Use
  Company Number: 20110671

PATIENT
  Age: 65 Year
  Sex: Female

DRUGS (2)
  1. SODIUM THIOSULFATE [Suspect]
     Indication: CALCIPHYLAXIS
     Dosage: 25 G X 1, 3 TIMES PER  WEEKS INTRAVENOUS
     Route: 042
  2. MULTIPLE UNSPECIFIED [Concomitant]

REACTIONS (8)
  - SKIN INDURATION [None]
  - PAIN IN EXTREMITY [None]
  - METABOLIC ACIDOSIS [None]
  - OFF LABEL USE [None]
  - BLOOD PRESSURE DIASTOLIC DECREASED [None]
  - SKIN HYPERPIGMENTATION [None]
  - HEART RATE INCREASED [None]
  - HYPERKALAEMIA [None]
